FAERS Safety Report 11794418 (Version 1)
Quarter: 2015Q4

REPORT INFORMATION
  Report Type: Spontaneous
  Country: US (occurrence: US)
  Receive Date: 20151202
  Receipt Date: 20151202
  Transmission Date: 20160305
  Serious: No
  Sender: FDA-Public Use
  Company Number: US-PFIZER INC-2015404879

PATIENT
  Age: 79 Year
  Sex: Male
  Weight: 94.35 kg

DRUGS (2)
  1. FLECTOR [Suspect]
     Active Substance: DICLOFENAC EPOLAMINE
     Indication: BACK PAIN
     Dosage: 2 PATCHES A DAY, 1 PATCH AT ONE TIME FOR 2 DAYS, AS NEEDED
  2. ALLOPURINOL. [Suspect]
     Active Substance: ALLOPURINOL
     Indication: GOUTY ARTHRITIS
     Dosage: 100 MG, 1X/DAY
     Route: 048
     Dates: start: 2015

REACTIONS (3)
  - Prothrombin time prolonged [Recovered/Resolved]
  - Expired product administered [Unknown]
  - Product use issue [Unknown]

NARRATIVE: CASE EVENT DATE: 2015
